FAERS Safety Report 25318656 (Version 1)
Quarter: 2025Q2

REPORT INFORMATION
  Report Type: Spontaneous
  Country: US (occurrence: US)
  Receive Date: 20250515
  Receipt Date: 20250515
  Transmission Date: 20250716
  Serious: No
  Sender: BAYER HEALTHCARE PHARMACEUTICALS INC.
  Company Number: US-BAYER-2025A064478

PATIENT
  Age: 56 Year
  Sex: Female

DRUGS (1)
  1. CLIMARA PRO [Suspect]
     Active Substance: ESTRADIOL\LEVONORGESTREL
     Indication: Hormone replacement therapy
     Route: 062

REACTIONS (4)
  - Device adhesion issue [None]
  - Product dose omission issue [None]
  - Incorrect product administration duration [None]
  - Product quality issue [None]

NARRATIVE: CASE EVENT DATE: 20250501
